FAERS Safety Report 9605457 (Version 2)
Quarter: 2013Q4

REPORT INFORMATION
  Report Type: Report from Study
  Country: US (occurrence: US)
  Receive Date: 20131008
  Receipt Date: 20131011
  Transmission Date: 20140711
  Serious: Yes (Life-Threatening, Hospitalization)
  Sender: FDA-Public Use
  Company Number: US-MERCK-1310USA002310

PATIENT
  Age: 44 Year
  Sex: Female
  Weight: 79 kg

DRUGS (4)
  1. VORINOSTAT [Suspect]
     Indication: ACUTE MYELOID LEUKAEMIA
     Dosage: 500 MG, TID ON DAYS 1/3
     Route: 048
     Dates: start: 20130914, end: 20130916
  2. IDARUBICIN [Suspect]
     Indication: ACUTE MYELOID LEUKAEMIA
     Dosage: 12 MG/M2, QD OVER 15 MIN ON DAY 4-6
     Route: 042
     Dates: start: 20130917, end: 20130919
  3. CYTARABINE [Suspect]
     Indication: ACUTE MYELOID LEUKAEMIA
     Dosage: 1500 MG/M2/DAY ON DAYS 4-7
     Route: 041
     Dates: start: 20130917, end: 20130920
  4. VORICONAZOLE [Suspect]

REACTIONS (4)
  - Sepsis [Not Recovered/Not Resolved]
  - Enterocolitis [Not Recovered/Not Resolved]
  - Blood bilirubin increased [Not Recovered/Not Resolved]
  - Colitis [Not Recovered/Not Resolved]
